FAERS Safety Report 25143700 (Version 1)
Quarter: 2025Q2

REPORT INFORMATION
  Report Type: Spontaneous
  Country: CN (occurrence: CN)
  Receive Date: 20250401
  Receipt Date: 20250401
  Transmission Date: 20250717
  Serious: Yes (Hospitalization, Other)
  Sender: ACCORD
  Company Number: None

PATIENT
  Age: 48 Year
  Sex: Female

DRUGS (3)
  1. TRASTUZUMAB [Suspect]
     Active Substance: TRASTUZUMAB
     Indication: Breast cancer
     Dosage: 392 MILLIGRAM, QD, STRENGTH: 150 MILLIGRAM
     Route: 042
     Dates: start: 20250124, end: 20250124
  2. PERTUZUMAB [Suspect]
     Active Substance: PERTUZUMAB
     Indication: Breast cancer
     Dosage: 840 MILLIGRAM, QD
     Route: 042
     Dates: start: 20250124, end: 20250124
  3. DOCETAXEL [Suspect]
     Active Substance: DOCETAXEL
     Indication: Breast cancer
     Dosage: 147 MILLIGRAM, QD; IV DRIP
     Route: 042
     Dates: start: 20250125, end: 20250125

REACTIONS (2)
  - Drug-induced liver injury [Recovering/Resolving]
  - Chronic hepatitis B [Unknown]

NARRATIVE: CASE EVENT DATE: 20250216
